FAERS Safety Report 18388691 (Version 4)
Quarter: 2020Q4

REPORT INFORMATION
  Report Type: Report from Study
  Country: CO (occurrence: CO)
  Receive Date: 20201015
  Receipt Date: 20201125
  Transmission Date: 20210114
  Serious: Yes (Other)
  Sender: FDA-Public Use
  Company Number: NVSC2020CO273562

PATIENT
  Age: 56 Year
  Sex: Female
  Weight: 67 kg

DRUGS (5)
  1. ENALAPRIL [Concomitant]
     Active Substance: ENALAPRIL
     Indication: HYPERTENSION
     Dosage: 20 MG, QD (STARTED 15 YEARS AGO)
     Route: 048
  2. COSENTYX [Suspect]
     Active Substance: SECUKINUMAB
     Dosage: 300 MG, QMO
     Route: 058
     Dates: start: 20201023
  3. HYDROCHLOROTHIAZIDE. [Concomitant]
     Active Substance: HYDROCHLOROTHIAZIDE
     Indication: POLYURIA
     Dosage: 25 MG, QD (STARTED 15 YEARS AGO)
     Route: 048
  4. COSENTYX [Suspect]
     Active Substance: SECUKINUMAB
     Indication: PSORIASIS
     Dosage: 300 MG, QMO
     Route: 058
     Dates: start: 20191218
  5. METFORMIN [Concomitant]
     Active Substance: METFORMIN HYDROCHLORIDE
     Indication: DIABETES MELLITUS
     Dosage: 850 MG, PER 3 TABLETS, DAILY
     Route: 048

REACTIONS (10)
  - Arthritis [Recovering/Resolving]
  - Pain of skin [Recovering/Resolving]
  - Muscle rupture [Not Recovered/Not Resolved]
  - Arthralgia [Recovering/Resolving]
  - Dermatitis [Recovering/Resolving]
  - Hepatitis [Unknown]
  - Gait disturbance [Not Recovered/Not Resolved]
  - Pruritus [Recovering/Resolving]
  - Skin plaque [Recovering/Resolving]
  - Gait inability [Not Recovered/Not Resolved]

NARRATIVE: CASE EVENT DATE: 2020
